FAERS Safety Report 6818600-8 (Version None)
Quarter: 2010Q3

REPORT INFORMATION
  Report Type: 
  Country: None (occurrence: None)
  Receive Date: 20100706
  Receipt Date: 20081216
  Transmission Date: 20110219
  Serious: No
  Sender: FDA-Public Use
  Company Number: US-PFIZER INC-2008156572

PATIENT
  Age: 8 Year
  Sex: Female

DRUGS (1)
  1. ZITHROMAX [Suspect]
     Indication: LYME DISEASE
     Dosage: UNK
     Dates: start: 20080926, end: 20081026

REACTIONS (1)
  - DYSGEUSIA [None]
